FAERS Safety Report 15013262 (Version 1)
Quarter: 2018Q2

REPORT INFORMATION
  Report Type: Spontaneous
  Country: US (occurrence: US)
  Receive Date: 20180522
  Receipt Date: 20180522
  Transmission Date: 20180711
  Serious: No
  Sender: FDA-Public Use
  Company Number: None

PATIENT
  Age: 46 Year
  Sex: Male

DRUGS (2)
  1. ROCURONIUM INJ. 10MG/ML [Suspect]
     Active Substance: ROCURONIUM BROMIDE
     Indication: MEDIASTINOSCOPY
     Route: 042
     Dates: start: 20180516
  2. ROCURONIUM INJ. 10MG/ML [Suspect]
     Active Substance: ROCURONIUM BROMIDE
     Route: 042

REACTIONS (1)
  - Drug effect decreased [None]

NARRATIVE: CASE EVENT DATE: 20180516
